FAERS Safety Report 12722262 (Version 3)
Quarter: 2016Q4

REPORT INFORMATION
  Report Type: Report from Study
  Country: US (occurrence: US)
  Receive Date: 20160907
  Receipt Date: 20161123
  Transmission Date: 20170207
  Serious: Yes (Death, Hospitalization, Other)
  Sender: FDA-Public Use
  Company Number: US-ARIAD PHARMACEUTICALS, INC-2016US006449

PATIENT
  Age: 11 Year
  Sex: Male
  Weight: 27 kg

DRUGS (30)
  1. VINCRISTINE [Suspect]
     Active Substance: VINCRISTINE
     Dosage: 1.3 MG, SINGLE
     Route: 042
     Dates: start: 20160706, end: 20160706
  2. BACTRIM [Concomitant]
     Active Substance: SULFAMETHOXAZOLE\TRIMETHOPRIM
     Indication: ANTIFUNGAL PROPHYLAXIS
     Dosage: 8.6 ML, BID, SAT - SUN
     Route: 048
     Dates: start: 20160706
  3. ONDANSETRON [Concomitant]
     Active Substance: ONDANSETRON
     Indication: NAUSEA
     Dosage: 4 MG, Q8H
     Route: 049
     Dates: start: 20160531
  4. MIRALAX [Concomitant]
     Active Substance: POLYETHYLENE GLYCOL 3350
     Indication: PRODUCT USED FOR UNKNOWN INDICATION
     Dosage: 17 G, QD, PER G-TUBE, MIX WITH 4-8 OZ OF FLUID
     Route: 050
     Dates: start: 20160531
  5. SILVASORB [Concomitant]
     Active Substance: SILVER OXIDE
     Indication: WOUND TREATMENT
     Dosage: UNK
     Dates: start: 20160706
  6. LIDOCAINE. [Concomitant]
     Active Substance: LIDOCAINE
     Indication: MEDICAL PROCEDURE
     Dosage: APPLY 30 MIN BEFORE USE
     Route: 061
     Dates: start: 20160531
  7. ONDANSETRON [Concomitant]
     Active Substance: ONDANSETRON
     Indication: VOMITING
  8. ALBUTEROL. [Concomitant]
     Active Substance: ALBUTEROL
     Indication: COUGH
     Dosage: 2.5 MG, BID
     Route: 055
     Dates: start: 20160127
  9. ICLUSIG [Suspect]
     Active Substance: PONATINIB
     Dosage: 15 MG, QD, PER G-TUBE
     Route: 050
     Dates: start: 20160531
  10. ALBUTEROL. [Concomitant]
     Active Substance: ALBUTEROL
     Indication: WHEEZING
     Dosage: 2.5 MG, Q4H, PRN
     Route: 055
     Dates: start: 20160127
  11. TOPIRAMATE. [Concomitant]
     Active Substance: TOPIRAMATE
     Indication: PRODUCT USED FOR UNKNOWN INDICATION
     Dosage: 250 MG, BID, PER G-TUBE
     Route: 050
     Dates: start: 20160531
  12. MELATONIN [Concomitant]
     Active Substance: MELATONIN
     Indication: PRODUCT USED FOR UNKNOWN INDICATION
     Dosage: 3 MG, QD, AT BEDTIME
     Dates: start: 20160531
  13. LEVOTHYROXINE. [Concomitant]
     Active Substance: LEVOTHYROXINE
     Indication: PRODUCT USED FOR UNKNOWN INDICATION
     Dosage: 25 ?G, QD, PER G-TUBE
     Dates: start: 20160721
  14. ICLUSIG [Suspect]
     Active Substance: PONATINIB
     Indication: ACUTE LYMPHOCYTIC LEUKAEMIA RECURRENT
     Dosage: 15 MG, QD, PER G-TUBE
     Route: 050
     Dates: start: 20160531
  15. ICLUSIG [Suspect]
     Active Substance: PONATINIB
     Dosage: 15 MG, QD
     Route: 048
     Dates: start: 20160503
  16. VINCRISTINE [Suspect]
     Active Substance: VINCRISTINE
     Dosage: 1.3 MG, SINGLE
     Route: 042
     Dates: start: 20160608, end: 20160608
  17. MTX [Suspect]
     Active Substance: METHOTREXATE SODIUM
     Indication: ACUTE LYMPHOCYTIC LEUKAEMIA RECURRENT
     Dosage: 17.5 MG, WEEKLY (WED), PER G-TUBE
     Route: 050
     Dates: start: 20160715
  18. VIMPAT [Concomitant]
     Active Substance: LACOSAMIDE
     Indication: PRODUCT USED FOR UNKNOWN INDICATION
     Dosage: 200 MG, BID, PER G-TUBE
     Route: 050
     Dates: start: 20160531
  19. ALBUTEROL. [Concomitant]
     Active Substance: ALBUTEROL
     Indication: RESPIRATORY DISTRESS
  20. CLONAZEPAM. [Concomitant]
     Active Substance: CLONAZEPAM
     Indication: PRODUCT USED FOR UNKNOWN INDICATION
     Dosage: 0.5 MG, BID
     Route: 048
     Dates: start: 20160616
  21. HYDROCORTISONE. [Concomitant]
     Active Substance: HYDROCORTISONE
     Indication: PRODUCT USED FOR UNKNOWN INDICATION
     Dosage: 3 MG, TID
     Route: 048
     Dates: start: 20160721
  22. VINCRISTINE [Suspect]
     Active Substance: VINCRISTINE
     Indication: ACUTE LYMPHOCYTIC LEUKAEMIA RECURRENT
     Dosage: 1.4 MG, SINGLE
     Route: 042
     Dates: start: 20160803, end: 20160803
  23. PREDNISONE. [Suspect]
     Active Substance: PREDNISONE
     Indication: ACUTE LYMPHOCYTIC LEUKAEMIA RECURRENT
     Dosage: 17.5 MG, BID, PER G-TUBE, FOR 5 DAYS EVERY 4 WKS
     Route: 050
     Dates: start: 20160608
  24. 6-MP [Suspect]
     Active Substance: MERCAPTOPURINE
     Dosage: 50 MG, QD, SAT - SUN, PER G-TUBE, AT DINNER, WITH NO MILK OR CITRUS
     Route: 050
     Dates: start: 20160608
  25. DIAZEPAM. [Concomitant]
     Active Substance: DIAZEPAM
     Indication: SEIZURE
     Dosage: 7.5 MG, PRN (FOR SEIZURES GREATER THAT FIVE MINUTES OR MORE THAN THREE SEIZURES IN ONE HOUR)
     Dates: start: 20140610
  26. PULMICORT TURBUHALER [Concomitant]
     Active Substance: BUDESONIDE
     Indication: PRODUCT USED FOR UNKNOWN INDICATION
     Dosage: 0.5 MG, BID
     Route: 055
     Dates: start: 20160531
  27. VISCOPASTE [Concomitant]
     Indication: WOUND TREATMENT
     Dosage: UNK
     Dates: start: 20160706
  28. 6-MP [Suspect]
     Active Substance: MERCAPTOPURINE
     Indication: ACUTE LYMPHOCYTIC LEUKAEMIA RECURRENT
     Dosage: 75 MG, QD, MON - FRI, PER G-TUBE, AT DINNER, WITH NO MILK OR CITRUS
     Route: 050
     Dates: start: 20160608
  29. ICLUSIG [Suspect]
     Active Substance: PONATINIB
     Dosage: 15 MG, QD
  30. CYPROHEPTADINE. [Concomitant]
     Active Substance: CYPROHEPTADINE
     Indication: PRODUCT USED FOR UNKNOWN INDICATION
     Dosage: 4 MG, QD, AT BEDTIME
     Route: 048
     Dates: start: 20160531

REACTIONS (19)
  - Infection [Not Recovered/Not Resolved]
  - Cerebral dysgenesis [Unknown]
  - Rectal ulcer [Unknown]
  - Hypotonia [Unknown]
  - Gastrointestinal stoma output abnormal [Unknown]
  - Acute lymphocytic leukaemia recurrent [Fatal]
  - Gastric haemorrhage [Not Recovered/Not Resolved]
  - Hypophosphataemia [Unknown]
  - Decreased activity [Unknown]
  - Diarrhoea [Unknown]
  - Pyrexia [Not Recovered/Not Resolved]
  - Rash papular [Unknown]
  - Neutropenia [Not Recovered/Not Resolved]
  - Off label use [Not Recovered/Not Resolved]
  - Hypokalaemia [Unknown]
  - Bone marrow failure [Not Recovered/Not Resolved]
  - Encephalomalacia [Unknown]
  - Catheter culture positive [Unknown]
  - Abdominal distension [Unknown]

NARRATIVE: CASE EVENT DATE: 20160531
